FAERS Safety Report 4438756-4 (Version None)
Quarter: 2004Q3

REPORT INFORMATION
  Report Type: 
  Country: None (occurrence: None)
  Receive Date: 20040830
  Receipt Date: 20040812
  Transmission Date: 20050211
  Serious: Yes (Hospitalization)
  Sender: FDA-Public Use
  Company Number: 2003UW14496

PATIENT
  Age: 47 Year
  Sex: Female

DRUGS (21)
  1. SEROQUEL [Suspect]
     Dosage: 25 MG BID - 100 MG BID PO
     Route: 048
     Dates: start: 20011029
  2. CELEXA [Concomitant]
  3. TRAZODONE [Concomitant]
  4. NEURONTIN [Concomitant]
  5. CELEBREX [Concomitant]
  6. WELLBUTRIN [Concomitant]
  7. ADVIL [Concomitant]
  8. HYDROXYZINE [Concomitant]
  9. NEXIUM [Concomitant]
  10. FIORINAL [Concomitant]
  11. DARVOCET-N 100 [Concomitant]
  12. KEPPRA [Concomitant]
  13. STEROID [Concomitant]
  14. ADVAIR DISKUS 100/50 [Concomitant]
  15. PREDNISONE [Concomitant]
  16. TYLENOL [Concomitant]
  17. PRAVACHOL [Concomitant]
  18. MEDROL [Concomitant]
  19. VISTARIL [Concomitant]
  20. DEPAKOTE [Concomitant]
  21. PLAQUENIL [Concomitant]

REACTIONS (35)
  - ANXIETY [None]
  - APHASIA [None]
  - ARACHNOID CYST [None]
  - ARTERIAL THROMBOSIS [None]
  - CARDIOMEGALY [None]
  - COMPLICATED MIGRAINE [None]
  - CONDITION AGGRAVATED [None]
  - DILATATION VENTRICULAR [None]
  - DISTURBANCE IN ATTENTION [None]
  - DIZZINESS [None]
  - DRUG INEFFECTIVE [None]
  - DYSKINESIA [None]
  - DYSPHASIA [None]
  - DYSPNOEA [None]
  - EJECTION FRACTION DECREASED [None]
  - FATIGUE [None]
  - IMPULSE-CONTROL DISORDER [None]
  - MAJOR DEPRESSION [None]
  - MIGRAINE [None]
  - MYOCLONIC EPILEPSY [None]
  - PAIN [None]
  - PERSONALITY CHANGE [None]
  - POLLAKIURIA [None]
  - SELF-INJURIOUS IDEATION [None]
  - SELF-MEDICATION [None]
  - SLEEP DISORDER [None]
  - SOMNOLENCE [None]
  - SUICIDAL IDEATION [None]
  - SYSTEMIC LUPUS ERYTHEMATOSUS [None]
  - THIRST [None]
  - TRANSIENT ISCHAEMIC ATTACK [None]
  - TREMOR [None]
  - VENTRICULAR HYPERTROPHY [None]
  - WEIGHT DECREASED [None]
  - WEIGHT INCREASED [None]
